FAERS Safety Report 24050865 (Version 1)
Quarter: 2024Q3

REPORT INFORMATION
  Report Type: Spontaneous
  Country: ZA (occurrence: None)
  Receive Date: 20240704
  Receipt Date: 20240704
  Transmission Date: 20241017
  Serious: Yes (Other)
  Sender: ASTRAZENECA
  Company Number: 2024A148265

PATIENT
  Age: 82 Year
  Sex: Male

DRUGS (10)
  1. BUDESONIDE\FORMOTEROL [Suspect]
     Active Substance: BUDESONIDE\FORMOTEROL
     Indication: Asthma
     Dosage: UNKNOWN UNKNOWN
     Route: 055
  2. MULTIVITAMIN (BRUNEL) [Concomitant]
  3. OLANZAPINE [Concomitant]
     Active Substance: OLANZAPINE
     Indication: Psychiatric investigation
  4. PURBAC ADULT [Concomitant]
     Indication: Acne
  5. MOVICOL [Concomitant]
     Active Substance: POLYETHYLENE GLYCOL 3350\POTASSIUM CHLORIDE\SODIUM BICARBONATE\SODIUM CHLORIDE
  6. NIOSAR [Concomitant]
  7. ASPIRIN [Concomitant]
     Active Substance: ASPIRIN
     Indication: Thrombosis
  8. GLYCOPYRRONIUM\INDACATEROL [Concomitant]
     Active Substance: GLYCOPYRRONIUM\INDACATEROL
     Indication: Dementia Alzheimer^s type
  9. OXAZEPAM [Concomitant]
     Active Substance: OXAZEPAM
     Indication: Anxiety
  10. ALLOPURINOL [Concomitant]
     Active Substance: ALLOPURINOL
     Indication: Gout

REACTIONS (2)
  - Aphasia [Unknown]
  - Gait inability [Unknown]
